FAERS Safety Report 7594612-4 (Version None)
Quarter: 2011Q2

REPORT INFORMATION
  Report Type: 
  Country: None (occurrence: None)
  Receive Date: 20110609
  Receipt Date: 20110419
  Transmission Date: 20111010
  Serious: No
  Sender: FDA-Public Use
  Company Number: TH-2011-00102

PATIENT

DRUGS (2)
  1. EGRIFTA [Suspect]
     Dates: start: 20110301, end: 20110419
  2. ORAL MEDICATRION [Concomitant]

REACTIONS (2)
  - BLOOD GLUCOSE INCREASED [None]
  - GYNAECOMASTIA [None]
